FAERS Safety Report 18981955 (Version 1)
Quarter: 2021Q1

REPORT INFORMATION
  Report Type: Spontaneous
  Country: US (occurrence: US)
  Receive Date: 20210308
  Receipt Date: 20210308
  Transmission Date: 20210420
  Serious: Yes (Other)
  Sender: FDA-Public Use
  Company Number: US-TAKEDA-2021TUS013172

PATIENT
  Sex: Male
  Weight: 69.84 kg

DRUGS (10)
  1. ACYCLOVIR [ACICLOVIR] [Concomitant]
     Active Substance: ACYCLOVIR
  2. EPINEPHRINE. [Concomitant]
     Active Substance: EPINEPHRINE
  3. LIDOCAINE. [Concomitant]
     Active Substance: LIDOCAINE
  4. PRILOCAINE [Concomitant]
     Active Substance: PRILOCAINE
  5. GAMMAGARD LIQUID [Suspect]
     Active Substance: HUMAN IMMUNOGLOBULIN G
     Indication: LYMPHOCYTIC LEUKAEMIA
  6. ACETAMINOPHEN. [Concomitant]
     Active Substance: ACETAMINOPHEN
  7. TYLENOL EXTRA STRENGTH [Concomitant]
     Active Substance: ACETAMINOPHEN
  8. VITAMINS NOS [Concomitant]
     Active Substance: VITAMINS
  9. GAMMAGARD LIQUID [Suspect]
     Active Substance: HUMAN IMMUNOGLOBULIN G
     Indication: HYPOGAMMAGLOBULINAEMIA
     Dosage: 5 GRAM, 1/WEEK
     Route: 058
     Dates: start: 20201122
  10. CALQUENCE [Concomitant]
     Active Substance: ACALABRUTINIB

REACTIONS (1)
  - Endodontic procedure [Unknown]
